FAERS Safety Report 23517184 (Version 1)
Quarter: 2024Q1

REPORT INFORMATION
  Report Type: Spontaneous
  Country: US (occurrence: None)
  Receive Date: 20240212
  Receipt Date: 20240212
  Transmission Date: 20240410
  Serious: Yes (Death, Hospitalization)
  Sender: FDA-Public Use
  Company Number: None

PATIENT
  Age: 54 Year
  Sex: Male

DRUGS (2)
  1. AMBRISENTAN [Suspect]
     Active Substance: AMBRISENTAN
     Indication: Pulmonary arterial hypertension
     Dosage: FREQUENCY : DAILY;?
     Route: 048
     Dates: start: 20221208, end: 20231231
  2. SILDENAFIL [Concomitant]

REACTIONS (4)
  - Respiratory failure [None]
  - Hypotension [None]
  - Cardiac arrest [None]
  - Lung infiltration [None]

NARRATIVE: CASE EVENT DATE: 20230131
